FAERS Safety Report 25846595 (Version 2)
Quarter: 2025Q4

REPORT INFORMATION
  Report Type: Report from Study
  Country: US (occurrence: US)
  Receive Date: 20250925
  Receipt Date: 20251017
  Transmission Date: 20260117
  Serious: Yes (Hospitalization)
  Sender: ROCHE
  Company Number: US-ROCHE-10000392755

PATIENT
  Age: 71 Year
  Sex: Female

DRUGS (2)
  1. ACTEMRA ACTPEN [Suspect]
     Active Substance: TOCILIZUMAB
     Indication: Giant cell arteritis
     Dosage: INJECT 162MG SUBCUTANEOUSLY EVERY 21 DAY(S)
     Route: 058
  2. ACTEMRA ACTPEN [Suspect]
     Active Substance: TOCILIZUMAB
     Indication: Polymyalgia rheumatica

REACTIONS (2)
  - Eye pain [Unknown]
  - Hypertension [Unknown]
